FAERS Safety Report 18346094 (Version 1)
Quarter: 2020Q4

REPORT INFORMATION
  Report Type: Spontaneous
  Country: US (occurrence: US)
  Receive Date: 20201005
  Receipt Date: 20201005
  Transmission Date: 20210114
  Serious: Yes (Other)
  Sender: FDA-Public Use
  Company Number: US-ANIPHARMA-2020-US-018482

PATIENT
  Age: 67 Year
  Sex: Male

DRUGS (3)
  1. DECITABINE. [Concomitant]
     Active Substance: DECITABINE
  2. ZONISAMIDE (NON-SPECIFIC) [Suspect]
     Active Substance: ZONISAMIDE
     Indication: ESSENTIAL TREMOR
     Dosage: 100 MG DAILY
  3. LATANOPROST. [Concomitant]
     Active Substance: LATANOPROST
     Dosage: INSTILLED IN LEFT EYE AT BEDTIME

REACTIONS (2)
  - Angle closure glaucoma [Unknown]
  - Choroidal effusion [Unknown]
